FAERS Safety Report 25157952 (Version 2)
Quarter: 2025Q2

REPORT INFORMATION
  Report Type: Report from Study
  Country: US (occurrence: US)
  Receive Date: 20250404
  Receipt Date: 20250407
  Transmission Date: 20250716
  Serious: Yes (Hospitalization)
  Sender: ABBVIE
  Company Number: US-ABBVIE-6205259

PATIENT
  Age: 87 Year
  Sex: Female

DRUGS (2)
  1. RINVOQ [Suspect]
     Active Substance: UPADACITINIB
     Indication: Colitis ulcerative
     Route: 048
     Dates: start: 2023, end: 202412
  2. RINVOQ [Suspect]
     Active Substance: UPADACITINIB
     Indication: Colitis ulcerative
     Route: 048
     Dates: start: 202412

REACTIONS (8)
  - COVID-19 [Recovered/Resolved]
  - Fall [Recovering/Resolving]
  - Rotavirus infection [Recovered/Resolved]
  - Influenza [Not Recovered/Not Resolved]
  - Colitis ulcerative [Recovering/Resolving]
  - Pneumonia [Recovered/Resolved]
  - Therapeutic product effect decreased [Unknown]
  - Fracture [Recovering/Resolving]

NARRATIVE: CASE EVENT DATE: 20241201
